FAERS Safety Report 12737968 (Version 1)
Quarter: 2016Q3

REPORT INFORMATION
  Report Type: Spontaneous
  Country: CN (occurrence: CN)
  Receive Date: 20160913
  Receipt Date: 20160913
  Transmission Date: 20161109
  Serious: Yes (Life-Threatening, Hospitalization)
  Sender: FDA-Public Use
  Company Number: CN-PFIZER INC-2016423342

PATIENT
  Age: 61 Year
  Sex: Female
  Weight: 50 kg

DRUGS (3)
  1. PREDNISOLONE ACETATE. [Suspect]
     Active Substance: PREDNISOLONE ACETATE
     Indication: MYELITIS
     Dosage: 60 MG, 1X/DAY
     Route: 048
     Dates: start: 20160702, end: 20160704
  2. XUESAITONG [Suspect]
     Active Substance: PANAX NOTOGINSENG ROOT
     Indication: CARDIOVASCULAR DISORDER
     Dosage: 400 MG, 1X/DAY
     Route: 041
     Dates: start: 20160624, end: 20160702
  3. METHYLPREDNISOLONE SODIUM SUCCINATE. [Suspect]
     Active Substance: METHYLPREDNISOLONE SODIUM SUCCINATE
     Indication: MYELITIS
     Dosage: 500 MG, 1X/DAY
     Route: 041
     Dates: start: 20160627, end: 20160701

REACTIONS (3)
  - Gastrointestinal haemorrhage [Recovering/Resolving]
  - Rash [Recovering/Resolving]
  - Shock [Recovering/Resolving]

NARRATIVE: CASE EVENT DATE: 20160703
